FAERS Safety Report 5146701-1 (Version None)
Quarter: 2006Q4

REPORT INFORMATION
  Report Type: 
  Country: None (occurrence: None)
  Receive Date: 20061109
  Receipt Date: 20061003
  Transmission Date: 20070319
  Serious: Yes (Other)
  Sender: FDA-Public Use
  Company Number: NO-ROCHE-465838

PATIENT
  Age: 76 Year
  Sex: Female
  Weight: 55 kg

DRUGS (5)
  1. BONIVA [Suspect]
     Indication: OSTEOPOROSIS
     Route: 048
     Dates: start: 20060609
  2. PLAVIX [Concomitant]
     Dosage: DOSING REGIMEN: 1/1 DAY
     Route: 048
     Dates: start: 20060627
  3. ALBYL-E [Concomitant]
     Dosage: DOSING REGIMEN: 1/1DAY
     Route: 048
  4. CARVEDILOL [Concomitant]
     Dosage: NON-ROCHE CARVEDILOL
     Route: 048
  5. CALCIUM SUPPLEMENT [Concomitant]
     Indication: OSTEOPOROSIS
     Route: 048

REACTIONS (6)
  - BREAST PAIN [None]
  - GASTROINTESTINAL DISORDER [None]
  - HAND FRACTURE [None]
  - INCLUSION BODY MYOSITIS [None]
  - MUSCULOSKELETAL STIFFNESS [None]
  - WRIST FRACTURE [None]
